FAERS Safety Report 5399071-8 (Version None)
Quarter: 2007Q3

REPORT INFORMATION
  Report Type: 
  Country: None (occurrence: None)
  Receive Date: 20070727
  Receipt Date: 20070723
  Transmission Date: 20080115
  Serious: Yes (Hospitalization, Other)
  Sender: FDA-Public Use
  Company Number: HQWYE835827JUN07

PATIENT
  Sex: Female

DRUGS (6)
  1. INDERAL [Suspect]
     Indication: HYPERTHYROIDISM
     Route: 048
     Dates: start: 20050930, end: 20051017
  2. INDERAL [Suspect]
     Indication: PALPITATIONS
  3. BANAN [Suspect]
     Indication: UPPER RESPIRATORY TRACT INFLAMMATION
     Route: 048
     Dates: start: 20051011, end: 20051012
  4. LOXONIN [Suspect]
     Indication: UPPER RESPIRATORY TRACT INFLAMMATION
     Dates: start: 20051011, end: 20051015
  5. MERCAZOLE [Suspect]
     Indication: HYPERTHYROIDISM
     Route: 048
     Dates: start: 20050930, end: 20051011
  6. MERCAZOLE [Suspect]
     Route: 048
     Dates: start: 20051012, end: 20051017

REACTIONS (6)
  - ARTHRALGIA [None]
  - CHILLS [None]
  - DRUG ERUPTION [None]
  - HEPATIC FUNCTION ABNORMAL [None]
  - PHARYNGITIS [None]
  - PYREXIA [None]
